FAERS Safety Report 8364757-X (Version None)
Quarter: 2012Q2

REPORT INFORMATION
  Report Type: 
  Country: None (occurrence: None)
  Receive Date: 20120516
  Receipt Date: 20120427
  Transmission Date: 20120825
  Serious: No
  Sender: FDA-Public Use
  Company Number: US-BAYER-2012-044407

PATIENT
  Age: 52 Year
  Sex: Female
  Weight: 70 kg

DRUGS (2)
  1. NAPROXEN SODIUM [Suspect]
     Dosage: 1 U, PRN
     Route: 048
     Dates: start: 20120201
  2. CITALOPRAM HYDROBROMIDE [Concomitant]

REACTIONS (1)
  - NO ADVERSE EVENT [None]
